FAERS Safety Report 8903642 (Version 1)
Quarter: 2012Q4

REPORT INFORMATION
  Report Type: 
  Country: IS (occurrence: IS)
  Receive Date: 20121112
  Receipt Date: 20121112
  Transmission Date: 20130627
  Serious: Yes (Hospitalization)
  Sender: FDA-Public Use
  Company Number: IS-PERRIGO-12IS009562

PATIENT
  Age: 44 Year
  Sex: Female

DRUGS (1)
  1. ACETAMINOPHEN 650MG ER 544 [Suspect]
     Indication: PRODUCT USED FOR UNKNOWN INDICATION
     Dosage: UNK, UNK
     Route: 048

REACTIONS (8)
  - Acute hepatic failure [Recovering/Resolving]
  - Hepatotoxicity [Recovering/Resolving]
  - Encephalopathy [Recovering/Resolving]
  - Alanine aminotransferase increased [Recovering/Resolving]
  - Aspartate aminotransferase increased [Recovering/Resolving]
  - Prothrombin time prolonged [Recovering/Resolving]
  - Blood creatinine increased [Recovering/Resolving]
  - Accidental overdose [Recovering/Resolving]
